FAERS Safety Report 9020434 (Version 1)
Quarter: 2013Q1

REPORT INFORMATION
  Report Type: Spontaneous
  Country: US (occurrence: US)
  Receive Date: 20130119
  Receipt Date: 20130119
  Transmission Date: 20140127
  Serious: No
  Sender: FDA-Public Use
  Company Number: US-ALLERGAN-1208509US

PATIENT
  Age: 81 Year
  Sex: Female

DRUGS (5)
  1. BOTOX? [Suspect]
     Indication: BLEPHAROSPASM
     Dosage: 160 UNITS, SINGLE
     Route: 030
     Dates: start: 20120503, end: 20120503
  2. BOTOX? [Suspect]
     Indication: SKIN WRINKLING
  3. BOTOX? [Suspect]
     Indication: SKIN WRINKLING
  4. BOTOX? [Suspect]
     Indication: SKIN WRINKLING
  5. BOTOX? [Suspect]
     Indication: SKIN WRINKLING

REACTIONS (2)
  - Poor quality drug administered [Unknown]
  - Therapeutic response decreased [Unknown]
